FAERS Safety Report 24467804 (Version 1)
Quarter: 2024Q4

REPORT INFORMATION
  Report Type: Spontaneous
  Country: US (occurrence: US)
  Receive Date: 20241018
  Receipt Date: 20241018
  Transmission Date: 20250114
  Serious: No
  Sender: Phathom Pharmaceuticals
  Company Number: US-PHATHOM PHARMACEUTICALS INC.-2024PHT00826

PATIENT
  Sex: Male

DRUGS (1)
  1. VOQUEZNA [Suspect]
     Active Substance: VONOPRAZAN FUMARATE
     Indication: Gastrooesophageal reflux disease
     Dosage: 20 MG, 1X/DAY
     Route: 048
     Dates: start: 202408, end: 202408

REACTIONS (5)
  - Genital candidiasis [Not Recovered/Not Resolved]
  - Genital erythema [Not Recovered/Not Resolved]
  - Genital discomfort [Not Recovered/Not Resolved]
  - Genital odour [Not Recovered/Not Resolved]
  - Genital discharge [Not Recovered/Not Resolved]

NARRATIVE: CASE EVENT DATE: 20240801
